FAERS Safety Report 4286398-6 (Version None)
Quarter: 2004Q1

REPORT INFORMATION
  Report Type: 
  Country: None (occurrence: None)
  Receive Date: 20040126
  Receipt Date: 20031119
  Transmission Date: 20041129
  Serious: Yes (Hospitalization)
  Sender: FDA-Public Use
  Company Number: USA030946165

PATIENT
  Age: 70 Year
  Sex: Female

DRUGS (3)
  1. FORTEO [Suspect]
     Indication: OSTEOPOROSIS
     Dates: start: 20030501
  2. VIOXX [Concomitant]
  3. RELAFEN [Concomitant]

REACTIONS (7)
  - DIZZINESS [None]
  - FALL [None]
  - FEELING ABNORMAL [None]
  - INNER EAR DISORDER [None]
  - MIDDLE EAR EFFUSION [None]
  - RETCHING [None]
  - VERTIGO [None]
